FAERS Safety Report 15245220 (Version 2)
Quarter: 2018Q3

REPORT INFORMATION
  Report Type: Spontaneous
  Country: US (occurrence: US)
  Receive Date: 20180806
  Receipt Date: 20180807
  Transmission Date: 20181010
  Serious: No
  Sender: FDA-Public Use
  Company Number: US-PFIZER INC-2018312582

PATIENT
  Sex: Female

DRUGS (2)
  1. SERTRALINE HCL [Suspect]
     Active Substance: SERTRALINE HYDROCHLORIDE
     Indication: ANXIETY
     Dosage: 2.5 ML, 1X/DAY(2.5 ML FOR 5 DAYS ONCE A DAY BY MOUTH)
     Route: 048
  2. SERTRALINE HCL [Suspect]
     Active Substance: SERTRALINE HYDROCHLORIDE
     Dosage: 5 ML, 1X/DAY(AFTER 5 DAYS 5 ML ONCE PER DAY BY MOUTH)
     Route: 048

REACTIONS (4)
  - Intentional product misuse [Unknown]
  - Product taste abnormal [Unknown]
  - Dysgeusia [Unknown]
  - Hypoaesthesia oral [Recovering/Resolving]

NARRATIVE: CASE EVENT DATE: 2018
